FAERS Safety Report 10039721 (Version 1)
Quarter: 2014Q1

REPORT INFORMATION
  Report Type: Spontaneous
  Country: GB (occurrence: GB)
  Receive Date: 20140326
  Receipt Date: 20140326
  Transmission Date: 20141002
  Serious: Yes (Other)
  Sender: FDA-Public Use
  Company Number: GB-PFIZER INC-2014082770

PATIENT
  Age: 41 Year
  Sex: Male

DRUGS (4)
  1. LYRICA [Suspect]
     Dosage: 300 MG, 1X/DAY
  2. CITALOPRAM [Concomitant]
     Dosage: 40 MG, UNK
  3. BISOPROLOL [Concomitant]
     Dosage: 5 MG, 3X/DAY
  4. PROPRANOLOL [Concomitant]
     Dosage: 160 MG, 1X/DAY

REACTIONS (4)
  - Suicidal ideation [Unknown]
  - Suicide attempt [Unknown]
  - Thinking abnormal [Unknown]
  - Insomnia [Unknown]
